FAERS Safety Report 4706696-9 (Version None)
Quarter: 2005Q2

REPORT INFORMATION
  Report Type: 
  Country: None (occurrence: None)
  Receive Date: 20050629
  Receipt Date: 20050328
  Transmission Date: 20051028
  Serious: No
  Sender: FDA-Public Use
  Company Number: 05P-163-0295384-00

PATIENT
  Age: 85 Year
  Sex: Female
  Weight: 58.9676 kg

DRUGS (15)
  1. HUMIRA [Suspect]
     Indication: RHEUMATOID ARTHRITIS
     Dosage: 40 MG, 1 IN 2 WK, SUBCUTANEOUS
     Route: 058
     Dates: start: 20050301
  2. PSYLLIUM HYDROPHILIC MUCILLOID [Concomitant]
  3. CALCIUM WITH VITAMIN D [Concomitant]
  4. METOCLOPRAMIDE [Concomitant]
  5. MIRTAZAPINE [Concomitant]
  6. VICODIN [Concomitant]
  7. TRAMADOL HCL [Concomitant]
  8. RISEDRONATE SODIUM [Concomitant]
  9. MULTI-VITAMINS [Concomitant]
  10. TOLTERODINE TARTRATE [Concomitant]
  11. OMEPRAZOLE [Concomitant]
  12. LEVOTHYROXINE SODIUM [Concomitant]
  13. TORSEMIDE [Concomitant]
  14. ENALAPRIL MALEATE [Concomitant]
  15. PREDNISONE [Concomitant]

REACTIONS (1)
  - SLEEP DISORDER [None]
